FAERS Safety Report 23904945 (Version 1)
Quarter: 2024Q2

REPORT INFORMATION
  Report Type: Spontaneous
  Country: US (occurrence: US)
  Receive Date: 20240527
  Receipt Date: 20240527
  Transmission Date: 20240716
  Serious: No
  Sender: FDA-Public Use
  Company Number: US-Calliditas-2024CAL00783

PATIENT
  Age: 43 Year
  Sex: Female

DRUGS (1)
  1. TARPEYO [Suspect]
     Active Substance: BUDESONIDE
     Indication: Haematuria
     Route: 048
     Dates: start: 20240321

REACTIONS (9)
  - Product dose omission issue [Unknown]
  - COVID-19 [Unknown]
  - Nausea [Unknown]
  - Haemoglobin decreased [Unknown]
  - Blood iron decreased [Unknown]
  - Asthenia [Unknown]
  - Off label use [Unknown]
  - Vomiting [Unknown]
  - Blood glucose increased [Recovering/Resolving]

NARRATIVE: CASE EVENT DATE: 20240501
